FAERS Safety Report 11437307 (Version 1)
Quarter: 2015Q3

REPORT INFORMATION
  Report Type: Spontaneous
  Country: US (occurrence: US)
  Receive Date: 20150821
  Receipt Date: 20150821
  Transmission Date: 20151125
  Serious: No
  Sender: FDA-Public Use
  Company Number: US-ELI_LILLY_AND_COMPANY-US200704000608

PATIENT
  Age: 75 Year
  Sex: Female

DRUGS (7)
  1. CYMBALTA [Suspect]
     Active Substance: DULOXETINE HYDROCHLORIDE
     Dosage: 30 MG, DAILY (1/D)
  2. LISINOPRIL. [Concomitant]
     Active Substance: LISINOPRIL
  3. CYMBALTA [Suspect]
     Active Substance: DULOXETINE HYDROCHLORIDE
     Indication: DEPRESSION
     Dosage: 30 MG, DAILY (1/D)
     Dates: start: 2006, end: 200612
  4. CYMBALTA [Suspect]
     Active Substance: DULOXETINE HYDROCHLORIDE
     Dosage: 60 MG, DAILY (1/D)
     Dates: start: 200612
  5. LAXATIVES [Concomitant]
     Active Substance: UNSPECIFIED INGREDIENT
  6. COREG [Concomitant]
     Active Substance: CARVEDILOL
  7. PLAVIX [Concomitant]
     Active Substance: CLOPIDOGREL BISULFATE

REACTIONS (4)
  - Depression [Unknown]
  - Drug ineffective [Unknown]
  - Electrolyte imbalance [Unknown]
  - Diarrhoea [Unknown]

NARRATIVE: CASE EVENT DATE: 200608
